FAERS Safety Report 24991134 (Version 1)
Quarter: 2025Q1

REPORT INFORMATION
  Report Type: Spontaneous
  Country: US (occurrence: None)
  Receive Date: 20250220
  Receipt Date: 20250220
  Transmission Date: 20250409
  Serious: Yes (Other)
  Sender: FDA-CTU
  Company Number: None

PATIENT
  Age: 1 Day
  Sex: Male
  Weight: 3.1 kg

DRUGS (8)
  1. LAMOTRIGINE [Suspect]
     Active Substance: LAMOTRIGINE
  2. maternal medication: lamotrigine [Concomitant]
  3. maternal medication: amphetamine mix XR [Concomitant]
  4. maternal medication: amphetamine mix IR [Concomitant]
  5. maternal medication: montelukast [Concomitant]
  6. maternal medication: fluticasone propionate [Concomitant]
  7. maternal medication: albuterol [Concomitant]
  8. TRAZODONE [Concomitant]
     Active Substance: TRAZODONE HYDROCHLORIDE

REACTIONS (1)
  - Hypoglycaemia [None]

NARRATIVE: CASE EVENT DATE: 20220227
